FAERS Safety Report 7824490-7 (Version None)
Quarter: 2011Q4

REPORT INFORMATION
  Report Type: 
  Country: None (occurrence: None)
  Receive Date: 20111014
  Receipt Date: 20110924
  Transmission Date: 20120403
  Serious: Yes (Hospitalization)
  Sender: FDA-Public Use
  Company Number: TCI2011A04032

PATIENT
  Age: 82 Year
  Sex: Male

DRUGS (8)
  1. BLOPRESS (CANOESARTAN CILEXETIL) [Concomitant]
  2. BASEN (VOGLIBOSE) [Concomitant]
  3. ACTOS [Suspect]
     Indication: DIABETES MELLITUS
     Dosage: 15 MG (15 MG, 1 D) PER ORAL
     Route: 048
     Dates: start: 20060901
  4. TICLOPIDINE HCL [Concomitant]
  5. AMLODIPINE BESYLATE [Concomitant]
  6. AMARYL [Concomitant]
  7. SERMION (NICERGOLINE) [Concomitant]
  8. SELBEX (TEPREIONE) [Concomitant]

REACTIONS (1)
  - BLADDER NEOPLASM [None]
